FAERS Safety Report 17705828 (Version 4)
Quarter: 2020Q2

REPORT INFORMATION
  Report Type: Spontaneous
  Country: US (occurrence: US)
  Receive Date: 20200424
  Receipt Date: 20200623
  Transmission Date: 20200714
  Serious: No
  Sender: FDA-Public Use
  Company Number: US-PFIZER INC-2020001936

PATIENT
  Age: 14 Year
  Sex: Male
  Weight: 93.42 kg

DRUGS (2)
  1. GENOTROPIN [Suspect]
     Active Substance: SOMATROPIN
     Indication: GROWTH HORMONE DEFICIENCY
     Dosage: 3.2 MG, DAILY (EVERY NIGHT)
     Route: 058
     Dates: start: 20191106
  2. GENOTROPIN [Suspect]
     Active Substance: SOMATROPIN
     Dosage: 3.2 MG, DAILY (EVERY NIGHT)
     Route: 058

REACTIONS (5)
  - Device leakage [Unknown]
  - Product dose omission [Unknown]
  - Device breakage [Unknown]
  - Device use error [Unknown]
  - Drug dose omission by device [Unknown]

NARRATIVE: CASE EVENT DATE: 20191228
